FAERS Safety Report 7942848-2 (Version None)
Quarter: 2011Q4

REPORT INFORMATION
  Report Type: 
  Country: None (occurrence: None)
  Receive Date: 20111122
  Receipt Date: 20110718
  Transmission Date: 20120403
  Serious: No
  Sender: FDA-Public Use
  Company Number: PHHY2011US65237

PATIENT
  Age: 35 Year
  Sex: Female

DRUGS (5)
  1. PROVIGIL [Concomitant]
  2. LOESTRIN 1.5/30 [Concomitant]
  3. BUPROPION HCL [Concomitant]
  4. GILENYA [Suspect]
     Dosage: 0.5 MG, QD
  5. LEVOTHYROXINE SODIUM [Concomitant]

REACTIONS (4)
  - THROAT IRRITATION [None]
  - INSOMNIA [None]
  - COUGH [None]
  - INFLUENZA LIKE ILLNESS [None]
